FAERS Safety Report 17412881 (Version 1)
Quarter: 2020Q1

REPORT INFORMATION
  Report Type: Spontaneous
  Country: US (occurrence: US)
  Receive Date: 20200212
  Receipt Date: 20200212
  Transmission Date: 20200409
  Serious: Yes (Hospitalization)
  Sender: FDA-Public Use
  Company Number: None

PATIENT
  Age: 63 Year
  Sex: Female

DRUGS (7)
  1. HUMIRA [Suspect]
     Active Substance: ADALIMUMAB
     Route: 058
  2. XANAX [Concomitant]
     Active Substance: ALPRAZOLAM
  3. LYRICA [Concomitant]
     Active Substance: PREGABALIN
  4. PREDNISONE. [Concomitant]
     Active Substance: PREDNISONE
  5. ESTAZOLAM. [Concomitant]
     Active Substance: ESTAZOLAM
  6. MELOXICAM. [Concomitant]
     Active Substance: MELOXICAM
  7. ENBREL [Suspect]
     Active Substance: ETANERCEPT

REACTIONS (3)
  - Therapy cessation [None]
  - Nephrolithiasis [None]
  - Migraine [None]

NARRATIVE: CASE EVENT DATE: 20191101
